FAERS Safety Report 13403299 (Version 1)
Quarter: 2017Q2

REPORT INFORMATION
  Report Type: Spontaneous
  Country: US (occurrence: US)
  Receive Date: 20170404
  Receipt Date: 20170404
  Transmission Date: 20170830
  Serious: No
  Sender: FDA-Public Use
  Company Number: US-ROCHE-1883781

PATIENT
  Age: 12 Year
  Sex: Female

DRUGS (2)
  1. AVASTIN [Suspect]
     Active Substance: BEVACIZUMAB
     Indication: LARYNGEAL PAPILLOMA
     Route: 042
     Dates: start: 20150505
  2. AVASTIN [Suspect]
     Active Substance: BEVACIZUMAB
     Indication: RESPIRATORY PAPILLOMA

REACTIONS (2)
  - Proteinuria [Unknown]
  - Off label use [Unknown]
